FAERS Safety Report 9140902 (Version 1)
Quarter: 2013Q1

REPORT INFORMATION
  Report Type: Spontaneous
  Country: BR (occurrence: BR)
  Receive Date: 20130305
  Receipt Date: 20130305
  Transmission Date: 20140127
  Serious: Yes (Other)
  Sender: FDA-Public Use
  Company Number: PHHY2013BR020912

PATIENT
  Age: 52 Year
  Sex: Female
  Weight: 82 kg

DRUGS (5)
  1. BUFFERIN [Suspect]
     Indication: PARAESTHESIA
     Dosage: 1 DF, QD
     Route: 048
     Dates: start: 201302, end: 201302
  2. ATENOLOL [Concomitant]
     Indication: HYPERTENSION
     Dosage: 1 DF, QD
     Route: 048
     Dates: start: 2010
  3. DIOVAN HCT [Concomitant]
     Indication: HYPERTENSION
     Route: 048
  4. DEPAKOTE [Concomitant]
     Route: 048
  5. VALIUM [Concomitant]
     Route: 048

REACTIONS (2)
  - Gastric haemorrhage [Recovered/Resolved]
  - Dysgeusia [Recovered/Resolved]
